FAERS Safety Report 13841644 (Version 1)
Quarter: 2017Q3

REPORT INFORMATION
  Report Type: Report from Study
  Country: US (occurrence: US)
  Receive Date: 20170807
  Receipt Date: 20170807
  Transmission Date: 20171127
  Serious: No
  Sender: FDA-Public Use
  Company Number: US-AMGEN-USASP2016050116

PATIENT
  Age: 34 Year
  Sex: Female

DRUGS (2)
  1. IMMUNOGLOBULIN (IMMUNOGLOBULIN HUMAN NORMAL) [Concomitant]
     Active Substance: HUMAN IMMUNOGLOBULIN G
     Route: 042
  2. NPLATE [Suspect]
     Active Substance: ROMIPLOSTIM
     Indication: IMMUNE THROMBOCYTOPENIC PURPURA
     Dosage: 80 MUG, Q2WK
     Route: 065
     Dates: start: 201510

REACTIONS (3)
  - Inappropriate schedule of drug administration [Unknown]
  - Platelet count abnormal [Unknown]
  - Drug effect decreased [Unknown]
